FAERS Safety Report 7513919-X (Version None)
Quarter: 2011Q2

REPORT INFORMATION
  Report Type: 
  Country: None (occurrence: None)
  Receive Date: 20110531
  Receipt Date: 20110526
  Transmission Date: 20111010
  Serious: Yes (Death, Other)
  Sender: FDA-Public Use
  Company Number: FR-GENZYME-CAMP-1001641

PATIENT
  Age: 62 Year
  Sex: Male

DRUGS (23)
  1. CAMPATH [Suspect]
     Dosage: 30 MG/ML OVER 2-HOUR CONSTANT INFUSION RATE
     Route: 042
     Dates: start: 20110407, end: 20110407
  2. DEXAMETHASONE [Suspect]
     Indication: MANTLE CELL LYMPHOMA
     Dosage: UNK
     Route: 065
     Dates: start: 20100101
  3. CAMPATH [Suspect]
     Dosage: UNK 2ND CYCLE
     Route: 065
     Dates: start: 20100101
  4. CAMPATH [Suspect]
     Dosage: UNK 4TH CYCLE
     Route: 065
     Dates: start: 20100101
  5. HYDROXYZINE [Concomitant]
     Indication: PROPHYLAXIS
     Dosage: 25 MG ONCE 1HR BEFORE INFUSION
     Route: 042
     Dates: start: 20110324, end: 20110324
  6. DEXAMETHASONE [Suspect]
     Dosage: UNK
     Route: 065
     Dates: start: 20100101
  7. HYDROXYZINE [Concomitant]
     Dosage: 25 MG, ONCE 1 HR BEFORE INFUSION
     Route: 042
     Dates: start: 20110407, end: 20110407
  8. CAMPATH [Suspect]
     Indication: MANTLE CELL LYMPHOMA
     Dosage: UNK 1ST CYCLE
     Route: 065
     Dates: start: 20100101
  9. CAMPATH [Suspect]
     Dosage: UNK 3RD CYCLE
     Route: 065
     Dates: start: 20100101
  10. CYTARABINE [Suspect]
     Dosage: UNK
     Route: 065
     Dates: start: 20100101
  11. CISPLATIN [Suspect]
     Dosage: UNK
     Route: 065
     Dates: start: 20100101
  12. DEXAMETHASONE [Suspect]
     Dosage: UNK
     Route: 065
     Dates: start: 20100101
  13. CYTARABINE [Suspect]
     Dosage: UNK
     Route: 065
     Dates: start: 20100101
  14. CYTARABINE [Suspect]
     Dosage: UNK
     Route: 065
     Dates: start: 20100101
  15. CISPLATIN [Suspect]
     Dosage: UNK
     Route: 065
     Dates: start: 20100101
  16. ACETAMINOPHEN [Concomitant]
     Dosage: 1 G ONCE 1 HOUR BEFORE INFUSION
     Dates: start: 20110407, end: 20110407
  17. CYTARABINE [Suspect]
     Indication: MANTLE CELL LYMPHOMA
     Dosage: UNK
     Route: 065
     Dates: start: 20100101
  18. CORTICOSTEROIDS [Concomitant]
     Indication: ACUTE GRAFT VERSUS HOST DISEASE IN INTESTINE
     Dosage: UNK
     Dates: start: 20110301, end: 20110301
  19. ACETAMINOPHEN [Concomitant]
     Indication: PROPHYLAXIS
     Dosage: 1 G 1 HOUR BEFORE INFUSION
     Route: 042
     Dates: start: 20110324, end: 20110324
  20. CAMPATH [Suspect]
     Dosage: 30 MG/ML OVER 2-HOUR CONSTANT INFUSION RATE
     Route: 042
     Dates: start: 20110324, end: 20110324
  21. CISPLATIN [Suspect]
     Indication: MANTLE CELL LYMPHOMA
     Dosage: UNK
     Route: 065
     Dates: start: 20100101
  22. CISPLATIN [Suspect]
     Dosage: UNK
     Route: 065
     Dates: start: 20100101
  23. DEXAMETHASONE [Suspect]
     Dosage: UNK
     Route: 065
     Dates: start: 20100101

REACTIONS (4)
  - PULMONARY EMBOLISM [None]
  - ACUTE GRAFT VERSUS HOST DISEASE IN INTESTINE [None]
  - HYPOTENSION [None]
  - ARTERIOSPASM CORONARY [None]
